FAERS Safety Report 5917603-5 (Version None)
Quarter: 2008Q4

REPORT INFORMATION
  Report Type: 
  Country: None (occurrence: None)
  Receive Date: 20081014
  Receipt Date: 20080926
  Transmission Date: 20090506
  Serious: Yes (Hospitalization)
  Sender: FDA-Public Use
  Company Number: IN-AMGEN-UK310730

PATIENT
  Age: 51 Year
  Sex: Female

DRUGS (25)
  1. NEUPOGEN [Suspect]
     Indication: CHEMOTHERAPY
     Dates: start: 20080819, end: 20080904
  2. DEXAMETHASONE [Concomitant]
     Route: 042
  3. GRANISETRON [Concomitant]
     Route: 042
  4. RANITIDINE [Concomitant]
     Route: 042
  5. ETOPOSIDE [Concomitant]
     Route: 042
  6. MANNITOL [Concomitant]
     Route: 042
  7. CISPLATIN [Concomitant]
  8. ONDANSETRON [Concomitant]
     Route: 042
  9. APREPITANT [Concomitant]
  10. DOMPERIDONE [Concomitant]
  11. REGLAN [Concomitant]
  12. UNSPECIFIED INTRAVENOUS FLUIDS [Concomitant]
  13. AMARYL [Concomitant]
  14. ASPIRIN [Concomitant]
  15. LEVOTHYROXINE SODIUM [Concomitant]
  16. PREGABALIN [Concomitant]
  17. TELMISARTAN [Concomitant]
  18. POTASSIUM CHLORIDE [Concomitant]
  19. CODEINE LINCTUS [Concomitant]
  20. BETNOVATE [Concomitant]
  21. INSULIN [Concomitant]
  22. EPOETIN ALFA [Concomitant]
  23. VITAMINS, OTHER COMBINATIONS [Concomitant]
  24. CLOTRIMAZOLE [Concomitant]
  25. OMEPRAZOLE [Concomitant]

REACTIONS (1)
  - THERAPEUTIC RESPONSE DECREASED [None]
